FAERS Safety Report 14527076 (Version 1)
Quarter: 2018Q1

REPORT INFORMATION
  Report Type: Spontaneous
  Country: US (occurrence: US)
  Receive Date: 20180212
  Receipt Date: 20180212
  Transmission Date: 20180509
  Serious: Yes (Hospitalization)
  Sender: FDA-Public Use
  Company Number: None

PATIENT
  Age: 53 Year
  Sex: Male
  Weight: 86.1 kg

DRUGS (1)
  1. TORSEMIDE. [Suspect]
     Active Substance: TORSEMIDE

REACTIONS (2)
  - Hypotension [None]
  - Hypovolaemia [None]

NARRATIVE: CASE EVENT DATE: 20170930
